FAERS Safety Report 25932041 (Version 1)
Quarter: 2025Q4

REPORT INFORMATION
  Report Type: Spontaneous
  Country: US (occurrence: US)
  Receive Date: 20251016
  Receipt Date: 20251016
  Transmission Date: 20260118
  Serious: Yes (Other)
  Sender: EMD SERONO INC
  Company Number: US-Merck Healthcare KGaA-2025051003

PATIENT
  Age: 50 Year
  Sex: Female

DRUGS (4)
  1. MAVENCLAD [Suspect]
     Active Substance: CLADRIBINE
     Indication: Multiple sclerosis
     Dosage: YEAR ONE MONTH ONE THERAPY
  2. MAVENCLAD [Suspect]
     Active Substance: CLADRIBINE
     Dosage: YEAR ONE MONTH TWO THERAPY
     Dates: start: 20240815, end: 20240819
  3. MAVENCLAD [Suspect]
     Active Substance: CLADRIBINE
     Dosage: YEAR TWO MONTH ONE  THERAPY ONE TABLET ON DAY 1 TO 2 AND ONE TABLET ON DAY 3 TO 5.
     Dates: start: 20250718, end: 20250722
  4. MAVENCLAD [Suspect]
     Active Substance: CLADRIBINE
     Dosage: YEAR TWO MONTH TWO  THERAPY ONE TABLET ON DAY 1 TO 2 AND ONE TABLET ON DAY 3 TO 5.
     Dates: start: 20250815, end: 20250819

REACTIONS (5)
  - Hemiplegia [Unknown]
  - Headache [Recovered/Resolved]
  - Fatigue [Unknown]
  - Temperature intolerance [Unknown]
  - Sleep disorder [Unknown]

NARRATIVE: CASE EVENT DATE: 20250825
